FAERS Safety Report 7597086-2 (Version None)
Quarter: 2011Q3

REPORT INFORMATION
  Report Type: 
  Country: None (occurrence: None)
  Receive Date: 20110708
  Receipt Date: 20110630
  Transmission Date: 20111222
  Serious: Yes (Hospitalization, Other)
  Sender: FDA-Public Use
  Company Number: US-ALEXION-A201100277

PATIENT
  Sex: Female
  Weight: 98.4 kg

DRUGS (8)
  1. SOLIRIS [Suspect]
     Dosage: 900 MG, Q2W
     Dates: start: 20080604
  2. FERROUS SULFATE TAB [Concomitant]
     Dosage: UNK, BID
  3. LOVENOX [Concomitant]
     Dosage: 100 MG, BID
  4. PREDNISONE [Concomitant]
     Dosage: DROPPED FROM 40 MG QD  TO 10 MG QD
  5. SOLIRIS [Suspect]
     Indication: PAROXYSMAL NOCTURNAL HAEMOGLOBINURIA
     Dosage: 600 MG, UNK
     Route: 042
     Dates: start: 20080508, end: 20080501
  6. SOLIRIS [Suspect]
     Dosage: 1200 MG, Q2W
  7. MULTI-VITAMIN [Concomitant]
  8. COLACE [Concomitant]
     Dosage: UNK, BID

REACTIONS (10)
  - PREMATURE LABOUR [None]
  - SMEAR VAGINAL ABNORMAL [None]
  - MATERNAL EXPOSURE DURING PREGNANCY [None]
  - PREMATURE DELIVERY [None]
  - PERINEAL LACERATION [None]
  - HAEMOGLOBIN DECREASED [None]
  - TRANSFUSION [None]
  - CONDITION AGGRAVATED [None]
  - URINARY TRACT INFECTION [None]
  - HAEMATOCRIT DECREASED [None]
